FAERS Safety Report 18367820 (Version 2)
Quarter: 2021Q1

REPORT INFORMATION
  Report Type: Spontaneous
  Country: US (occurrence: US)
  Receive Date: 20201009
  Receipt Date: 20210123
  Transmission Date: 20210419
  Serious: Yes (Death)
  Sender: FDA-Public Use
  Company Number: US-TEVA-2020-US-1836822

PATIENT
  Age: 35 Year
  Sex: Female

DRUGS (4)
  1. HYDROCODONE [Concomitant]
     Active Substance: HYDROCODONE
     Route: 065
  2. FENTANYL. [Suspect]
     Active Substance: FENTANYL
     Route: 065
  3. NORCO [Concomitant]
     Active Substance: ACETAMINOPHEN\HYDROCODONE BITARTRATE
     Route: 065
  4. FENTANYL. [Suspect]
     Active Substance: FENTANYL
     Indication: PRODUCT USED FOR UNKNOWN INDICATION
     Dosage: 2500,50MCG.0.25, 200 OTHER(MULTIPLEX)
     Route: 065

REACTIONS (5)
  - Accidental overdose [Fatal]
  - Dependence [Fatal]
  - Cardiac arrest [Fatal]
  - Septic shock [Fatal]
  - Respiratory distress [Fatal]

NARRATIVE: CASE EVENT DATE: 20200504
